FAERS Safety Report 6171480-9 (Version None)
Quarter: 2009Q2

REPORT INFORMATION
  Report Type: 
  Country: None (occurrence: None)
  Receive Date: 20090429
  Receipt Date: 20090415
  Transmission Date: 20091009
  Serious: Yes (Other)
  Sender: FDA-Public Use
  Company Number: JP-PFIZER INC-2009204446

PATIENT

DRUGS (3)
  1. CLINDAMYCIN HCL [Suspect]
  2. WARFARIN [Concomitant]
  3. PIPERACILLIN [Concomitant]

REACTIONS (1)
  - TOXIC SKIN ERUPTION [None]
